FAERS Safety Report 18302984 (Version 7)
Quarter: 2022Q2

REPORT INFORMATION
  Report Type: Spontaneous
  Country: GB (occurrence: GB)
  Receive Date: 20200924
  Receipt Date: 20220505
  Transmission Date: 20220721
  Serious: Yes (Hospitalization)
  Sender: FDA-Public Use
  Company Number: GB-BIOGEN-2020BI00880313

PATIENT
  Sex: Female

DRUGS (11)
  1. DALFAMPRIDINE [Suspect]
     Active Substance: DALFAMPRIDINE
     Indication: Multiple sclerosis
     Route: 048
     Dates: start: 2016
  2. DALFAMPRIDINE [Suspect]
     Active Substance: DALFAMPRIDINE
     Route: 048
     Dates: start: 2017
  3. DALFAMPRIDINE [Suspect]
     Active Substance: DALFAMPRIDINE
     Route: 048
     Dates: start: 20170704
  4. DALFAMPRIDINE [Suspect]
     Active Substance: DALFAMPRIDINE
     Route: 048
     Dates: start: 20191102
  5. DALFAMPRIDINE [Suspect]
     Active Substance: DALFAMPRIDINE
     Route: 048
  6. COCODAMOL [Concomitant]
     Active Substance: ACETAMINOPHEN\CODEINE PHOSPHATE
     Indication: Multiple sclerosis
     Route: 065
  7. IBUPROFEN [Concomitant]
     Active Substance: IBUPROFEN
     Indication: Multiple sclerosis
     Route: 065
  8. VITAMIN C [Concomitant]
     Active Substance: ASCORBIC ACID
     Indication: Multiple sclerosis
     Route: 065
  9. AMITRIPTYLINE [Concomitant]
     Active Substance: AMITRIPTYLINE
     Indication: Multiple sclerosis
     Route: 065
  10. ACETAMINOPHEN [Concomitant]
     Active Substance: ACETAMINOPHEN
     Indication: Product used for unknown indication
     Route: 065
  11. MODAFINIL [Concomitant]
     Active Substance: MODAFINIL
     Indication: Multiple sclerosis
     Route: 065

REACTIONS (6)
  - Sepsis [Unknown]
  - Nephrolithiasis [Unknown]
  - Kidney infection [Unknown]
  - Malaise [Unknown]
  - Urinary tract infection [Recovered/Resolved]
  - Drug ineffective [Unknown]
